FAERS Safety Report 7103609-X (Version None)
Quarter: 2010Q4

REPORT INFORMATION
  Report Type: 
  Country: None (occurrence: None)
  Receive Date: 20101115
  Receipt Date: 20101105
  Transmission Date: 20110411
  Serious: Yes (Death)
  Sender: FDA-Public Use
  Company Number: US-PFIZER INC-2010146755

PATIENT
  Sex: Male

DRUGS (1)
  1. RAPAMUNE [Suspect]
     Indication: OFF LABEL USE
     Dosage: 4 MG, 1X/DAY
     Route: 048

REACTIONS (1)
  - NEOPLASM MALIGNANT [None]
